FAERS Safety Report 7893387-9 (Version None)
Quarter: 2011Q4

REPORT INFORMATION
  Report Type: 
  Country: None (occurrence: None)
  Receive Date: 20111104
  Receipt Date: 20111024
  Transmission Date: 20120403
  Serious: Yes (Other)
  Sender: FDA-Public Use
  Company Number: JP-PFIZER INC-2011264469

PATIENT
  Age: 84 Year
  Sex: Female

DRUGS (4)
  1. ALLOPURINOL [Suspect]
     Dosage: 100 MG, UID/DAILY
     Route: 048
     Dates: start: 20110822, end: 20110915
  2. MICARDIS [Concomitant]
     Dosage: UNK
     Dates: start: 20041213
  3. LIPITOR [Suspect]
     Dosage: 5 MG, UID/DAILY
     Route: 048
     Dates: start: 20110822, end: 20110915
  4. BISOPROLOL FUMARATE [Concomitant]
     Dosage: UNK
     Dates: start: 20030227

REACTIONS (2)
  - DRUG RASH WITH EOSINOPHILIA AND SYSTEMIC SYMPTOMS [None]
  - TOXIC EPIDERMAL NECROLYSIS [None]
